FAERS Safety Report 9370693 (Version 1)
Quarter: 2013Q2

REPORT INFORMATION
  Report Type: Spontaneous
  Country: US (occurrence: US)
  Receive Date: 20130626
  Receipt Date: 20130626
  Transmission Date: 20140414
  Serious: No
  Sender: FDA-Public Use
  Company Number: US-009507513-1306USA008133

PATIENT
  Sex: Female

DRUGS (2)
  1. PROVENTIL [Suspect]
     Indication: ASTHMA
     Dosage: 2 SPRAYS, EVERY 4-6 HOURS
     Route: 055
     Dates: start: 20130524
  2. FLOVENT [Concomitant]

REACTIONS (2)
  - Dyspnoea [Recovering/Resolving]
  - Device issue [Unknown]
